APPROVED DRUG PRODUCT: PIRFENIDONE
Active Ingredient: PIRFENIDONE
Strength: 267MG
Dosage Form/Route: CAPSULE;ORAL
Application: A212687 | Product #001
Applicant: APOTEX INC
Approved: Jun 9, 2023 | RLD: No | RS: No | Type: DISCN